FAERS Safety Report 4289108-1 (Version None)
Quarter: 2004Q1

REPORT INFORMATION
  Report Type: 
  Country: None (occurrence: None)
  Receive Date: 20040209
  Receipt Date: 20040209
  Transmission Date: 20041129
  Serious: Yes (Congenital Anomaly)
  Sender: FDA-Public Use
  Company Number: None

PATIENT
  Sex: Male
  Weight: 2.4948 kg

DRUGS (2)
  1. ACETAZOLAMIDE [Suspect]
     Indication: CEREBELLAR ATAXIA
     Dosage: 250 MG QID ORAL
     Route: 048
     Dates: start: 19940101, end: 20040208
  2. STANDARD PRENATAL VITAMINS [Concomitant]

REACTIONS (2)
  - CLEFT LIP AND PALATE [None]
  - MATERNAL DRUGS AFFECTING FOETUS [None]
